FAERS Safety Report 6233048-5 (Version None)
Quarter: 2009Q2

REPORT INFORMATION
  Report Type: 
  Country: None (occurrence: None)
  Receive Date: 20090612
  Receipt Date: 20090602
  Transmission Date: 20091009
  Serious: Yes (Other)
  Sender: FDA-Public Use
  Company Number: US-WYE-H09585109

PATIENT
  Sex: Female

DRUGS (1)
  1. ADVIL LIQUI-GELS [Suspect]
     Indication: PAIN
     Dosage: ONE TABLET OR SOMETIMES TWO TABLETS IN MID MORNING PER DAY, ORAL
     Route: 048

REACTIONS (1)
  - DRUG DEPENDENCE [None]
